FAERS Safety Report 5915214-9 (Version None)
Quarter: 2008Q4

REPORT INFORMATION
  Report Type: 
  Country: None (occurrence: None)
  Receive Date: 20081010
  Receipt Date: 20081006
  Transmission Date: 20090506
  Serious: Yes (Hospitalization)
  Sender: FDA-Public Use
  Company Number: FR-MERCK-0810FRA00021

PATIENT
  Age: 73 Year
  Sex: Female

DRUGS (1)
  1. VYTORIN [Suspect]
     Indication: DYSLIPIDAEMIA
     Route: 048
     Dates: start: 20080527, end: 20080820

REACTIONS (3)
  - MOTOR DYSFUNCTION [None]
  - RHABDOMYOLYSIS [None]
  - TRANSAMINASES INCREASED [None]
